FAERS Safety Report 9218850 (Version 1)
Quarter: 2013Q2

REPORT INFORMATION
  Report Type: Spontaneous
  Country: US (occurrence: None)
  Receive Date: 20130405
  Receipt Date: 20130405
  Transmission Date: 20140414
  Serious: No
  Sender: FDA-Public Use
  Company Number: None

PATIENT
  Age: 48 Year
  Sex: Female
  Weight: 58.97 kg

DRUGS (1)
  1. BUPROPION [Suspect]
     Indication: MAJOR DEPRESSION
     Dates: start: 20110601, end: 20130404

REACTIONS (2)
  - Drug ineffective [None]
  - Therapeutic response unexpected with drug substitution [None]
